FAERS Safety Report 16971623 (Version 1)
Quarter: 2019Q4

REPORT INFORMATION
  Report Type: Spontaneous
  Country: BR (occurrence: BR)
  Receive Date: 20191029
  Receipt Date: 20191029
  Transmission Date: 20200122
  Serious: Yes (Death, Hospitalization)
  Sender: FDA-Public Use
  Company Number: BR-CELGENEUS-BRA-20191009862

PATIENT
  Age: 84 Year
  Sex: Male

DRUGS (1)
  1. AZACITIDINE. [Suspect]
     Active Substance: AZACITIDINE
     Indication: MYELODYSPLASTIC SYNDROME
     Route: 065
     Dates: start: 20170820, end: 20190906

REACTIONS (4)
  - Fall [Fatal]
  - Effusion [Fatal]
  - Head injury [Fatal]
  - Death [Fatal]

NARRATIVE: CASE EVENT DATE: 20190906
